FAERS Safety Report 23030006 (Version 3)
Quarter: 2024Q1

REPORT INFORMATION
  Report Type: Spontaneous
  Country: FR (occurrence: FR)
  Receive Date: 20231005
  Receipt Date: 20240326
  Transmission Date: 20240409
  Serious: Yes (Hospitalization, Other)
  Sender: FDA-Public Use
  Company Number: FR-CELLTRION INC.-2023FR014565

PATIENT

DRUGS (3)
  1. INFLIXIMAB [Suspect]
     Active Substance: INFLIXIMAB
     Indication: Crohn^s disease
     Dosage: FIRST 2 DOSES OF REMSIMA PERFUSION
     Route: 058
  2. INFLIXIMAB [Suspect]
     Active Substance: INFLIXIMAB
     Dosage: 120 MILLIGRAM, 1 INJECTION EVERY 2 WEEKS/1 SUBCUTANEOUSLY 1 MONTH LATER, AND EVERY 15 DAYS THEREAFTE
     Route: 058
     Dates: start: 20230626
  3. AZATHIOPRINE [Concomitant]
     Active Substance: AZATHIOPRINE
     Dosage: 100 MILLIGRAM, QD

REACTIONS (5)
  - Crohn^s disease [Recovering/Resolving]
  - Hospitalisation [Unknown]
  - Hair texture abnormal [Recovered/Resolved]
  - Injection site rash [Recovered/Resolved]
  - Off label use [Unknown]
